FAERS Safety Report 9293862 (Version 4)
Quarter: 2013Q4

REPORT INFORMATION
  Report Type: Report from Study
  Country: CA (occurrence: CA)
  Receive Date: 20130516
  Receipt Date: 20131231
  Transmission Date: 20140711
  Serious: Yes (Other)
  Sender: FDA-Public Use
  Company Number: CA-UCBSA-084632

PATIENT
  Age: 50 Year
  Sex: Female
  Weight: 68 kg

DRUGS (11)
  1. CIMZIA [Suspect]
     Indication: RHEUMATOID ARTHRITIS
     Route: 058
     Dates: start: 201304, end: 201310
  2. FOLIC ACID [Concomitant]
     Route: 048
  3. METHOTREXATE [Concomitant]
     Indication: RHEUMATOID ARTHRITIS
     Route: 058
  4. METHOTREXATE [Concomitant]
     Indication: RHEUMATOID ARTHRITIS
     Dates: start: 2004
  5. VITAMIN D [Concomitant]
     Route: 048
  6. OMEGA 3 [Concomitant]
     Route: 048
  7. ENBREL [Concomitant]
     Route: 058
     Dates: start: 2006, end: 20130414
  8. BISOPROLOL [Concomitant]
     Indication: BLOOD PRESSURE
     Route: 048
     Dates: start: 20130508
  9. RAMIPRIL [Concomitant]
     Indication: BLOOD PRESSURE
     Route: 048
     Dates: start: 20130508
  10. WARFARIN [Concomitant]
     Indication: ANTICOAGULANT THERAPY
     Route: 048
     Dates: start: 20130508
  11. IBUPROFEN [Concomitant]
     Indication: PAIN
     Dosage: DOSE PER INTAKE: PRN

REACTIONS (4)
  - Congestive cardiomyopathy [Recovered/Resolved with Sequelae]
  - Injection site pain [Recovered/Resolved]
  - Carotid pulse [Not Recovered/Not Resolved]
  - Eye swelling [Not Recovered/Not Resolved]
